FAERS Safety Report 7296965-3 (Version None)
Quarter: 2011Q1

REPORT INFORMATION
  Report Type: 
  Country: None (occurrence: None)
  Receive Date: 20110204
  Receipt Date: 20110126
  Transmission Date: 20110831
  Serious: Yes (Other)
  Sender: FDA-Public Use
  Company Number: 2011MA000861

PATIENT
  Age: 35 Year
  Sex: Female

DRUGS (1)
  1. ACYCLOVIR [Suspect]
     Indication: HERPES SIMPLEX
     Dosage: 200 MG; ; PO
     Route: 048
     Dates: start: 20110106, end: 20110107

REACTIONS (2)
  - PRURITUS [None]
  - RASH MACULO-PAPULAR [None]
